FAERS Safety Report 24697263 (Version 1)
Quarter: 2024Q4

REPORT INFORMATION
  Report Type: Spontaneous
  Country: ES (occurrence: ES)
  Receive Date: 20241204
  Receipt Date: 20241204
  Transmission Date: 20250115
  Serious: Yes (Hospitalization)
  Sender: NOVARTIS
  Company Number: None

PATIENT
  Age: 51 Year
  Sex: Male

DRUGS (1)
  1. COSENTYX [Suspect]
     Active Substance: SECUKINUMAB
     Indication: Ankylosing spondylitis
     Dosage: 150 MG, QW, CADA SEMANA HASTA 5 SEMANAS, DEPUES MENSUAL.
     Route: 058
     Dates: start: 20240920, end: 20241011

REACTIONS (3)
  - Dysarthria [Recovering/Resolving]
  - Ataxia [Recovering/Resolving]
  - Dysmetria [Recovering/Resolving]

NARRATIVE: CASE EVENT DATE: 20240920
